FAERS Safety Report 7914996-4 (Version None)
Quarter: 2011Q4

REPORT INFORMATION
  Report Type: 
  Country: None (occurrence: None)
  Receive Date: 20111115
  Receipt Date: 20111021
  Transmission Date: 20120403
  Serious: Yes (Hospitalization)
  Sender: FDA-Public Use
  Company Number: AU-ROCHE-676757

PATIENT
  Sex: Female
  Weight: 67.8 kg

DRUGS (11)
  1. CARBOPLATIN [Suspect]
     Dosage: FORM: VIALS, DOSE LEVEL: 6 AUC.LAST DOSE PRIOR TO SAE: 31 DECEMBER 2009.
     Route: 042
  2. CARBOPLATIN [Suspect]
     Dosage: DOSE LEVEL: 5 AUC, DOSE REDUCED.
     Route: 042
  3. HERCEPTIN [Suspect]
     Indication: BREAST CANCER
     Dosage: FORM: VIALS, DOSE LEVEL: 6MG/KG, LAST DOSE PRIOR TO SAE: 10 DECEMBER 2009 AND 21 JANUARY 2010.
     Route: 042
  4. CARBOPLATIN [Suspect]
     Indication: BREAST CANCER
     Dosage: DOSE LEVEL: 5 AUC.  FORM: VIAL, LAST DOSE PRIOR TO SAE: 21 JANUARY 2010.
     Route: 042
  5. CARBOPLATIN [Suspect]
     Dosage: FORM: VIALS, DOSE LEVEL: 6 AUC
     Route: 042
  6. DOCETAXEL [Suspect]
     Indication: BREAST CANCER
     Dosage: FORM: VIALS, DOSE LEVEL: 75 MG/M2
     Route: 042
  7. METOCLOPRAMIDE [Concomitant]
  8. LORAZEPAM [Concomitant]
  9. DOCETAXEL [Suspect]
     Dosage: DOSE REDUCED.  DOSE LEVEL: 60 MG/M2
     Route: 042
  10. DOCETAXEL [Suspect]
     Dosage: FORM: VIALS, DOSE LEVEL: 60 MG/M2, LAST DOSE PRIOR TO SAE: 21 JANUARY 2010.
     Route: 042
  11. MORPHINE [Concomitant]

REACTIONS (5)
  - NEUTROPENIA [None]
  - VOMITING [None]
  - DEHYDRATION [None]
  - DIARRHOEA [None]
  - NAUSEA [None]
